FAERS Safety Report 18505473 (Version 1)
Quarter: 2020Q4

REPORT INFORMATION
  Report Type: Spontaneous
  Country: FR (occurrence: FR)
  Receive Date: 20201116
  Receipt Date: 20201116
  Transmission Date: 20210114
  Serious: Yes (Hospitalization)
  Sender: FDA-Public Use
  Company Number: FR-TEVA-2020-FR-1848055

PATIENT
  Age: 82 Year
  Sex: Female
  Weight: 52.9 kg

DRUGS (1)
  1. FLUOXETINE ACTAVIS 20 MG, COMPRIME DISPERSIBLE SECABLE [Suspect]
     Active Substance: FLUOXETINE HYDROCHLORIDE
     Indication: PRODUCT USED FOR UNKNOWN INDICATION
     Dosage: 20 MG
     Route: 048

REACTIONS (1)
  - Pyramidal tract syndrome [Unknown]

NARRATIVE: CASE EVENT DATE: 202007
